FAERS Safety Report 15101143 (Version 2)
Quarter: 2018Q3

REPORT INFORMATION
  Report Type: Spontaneous
  Country: JP (occurrence: JP)
  Receive Date: 20180703
  Receipt Date: 20180724
  Transmission Date: 20181010
  Serious: Yes (Hospitalization)
  Sender: FDA-Public Use
  Company Number: PHJP2018JP013268

PATIENT
  Sex: Female

DRUGS (6)
  1. ANPLAG [Concomitant]
     Active Substance: SARPOGRELATE
     Indication: PRODUCT USED FOR UNKNOWN INDICATION
     Dosage: UNK
     Route: 048
     Dates: end: 20180619
  2. PREDONINE [Concomitant]
     Active Substance: PREDNISOLONE
     Indication: PRODUCT USED FOR UNKNOWN INDICATION
     Dosage: 5 MG, UNK
     Route: 048
  3. PROCYLIN [Concomitant]
     Active Substance: BERAPROST SODIUM
     Indication: PRODUCT USED FOR UNKNOWN INDICATION
     Dosage: UNK
     Route: 048
     Dates: end: 20180619
  4. NEORAL [Suspect]
     Active Substance: CYCLOSPORINE
     Indication: COLLAGEN DISORDER
     Dosage: 100 MG, UNK
     Route: 048
  5. PROCYLIN [Concomitant]
     Active Substance: BERAPROST SODIUM
     Dosage: UNK
     Route: 048
     Dates: start: 20180626
  6. ANPLAG [Concomitant]
     Active Substance: SARPOGRELATE
     Dosage: UNK
     Route: 048
     Dates: start: 20180626

REACTIONS (2)
  - Product use in unapproved indication [Unknown]
  - Arthropathy [Recovering/Resolving]

NARRATIVE: CASE EVENT DATE: 20180620
